FAERS Safety Report 10183808 (Version 3)
Quarter: 2014Q4

REPORT INFORMATION
  Report Type: Spontaneous
  Country: US (occurrence: US)
  Receive Date: 20140520
  Receipt Date: 20141010
  Transmission Date: 20150528
  Serious: Yes (Hospitalization)
  Sender: FDA-Public Use
  Company Number: US-BAYER-2014-074975

PATIENT
  Age: 25 Year
  Sex: Female
  Weight: 63.49 kg

DRUGS (4)
  1. AMITIZA [Concomitant]
     Active Substance: LUBIPROSTONE
     Dosage: 80 ?G, BID
  2. MIRENA [Suspect]
     Active Substance: LEVONORGESTREL
     Indication: CONTRACEPTION
     Dosage: 20 MCG/24HR, CONT
     Route: 015
     Dates: start: 20121204, end: 20130306
  3. MIRENA [Suspect]
     Active Substance: LEVONORGESTREL
     Indication: CONTRACEPTION
     Dosage: 20 MCG/24HR, CONT
     Route: 015
     Dates: start: 201006, end: 20111130
  4. MIRENA [Suspect]
     Active Substance: LEVONORGESTREL
     Indication: CONTRACEPTION
     Dosage: 20 MCG/24HR, CONT
     Route: 015
     Dates: start: 201006, end: 201006

REACTIONS (7)
  - Abdominal pain [None]
  - Back pain [None]
  - Device dislocation [None]
  - Uterine perforation [None]
  - Emotional distress [None]
  - Abdominal pain lower [None]
  - Injury [None]

NARRATIVE: CASE EVENT DATE: 201301
